FAERS Safety Report 8848913 (Version 1)
Quarter: 2012Q4

REPORT INFORMATION
  Report Type: 
  Country: DE (occurrence: DE)
  Receive Date: 20121018
  Receipt Date: 20121018
  Transmission Date: 20130627
  Serious: No
  Sender: FDA-Public Use
  Company Number: PHHY2012DE061530

PATIENT
  Age: 53 Year
  Sex: Female
  Weight: 57 kg

DRUGS (2)
  1. TASIGNA [Suspect]
     Dosage: 150 mg, QID
     Route: 048
     Dates: start: 201207
  2. L-THYROXINE [Concomitant]
     Indication: HYPOTHYROIDISM
     Dosage: 1 DF, daily
     Route: 048

REACTIONS (1)
  - Back pain [Recovered/Resolved]
